FAERS Safety Report 8487441-0 (Version None)
Quarter: 2012Q3

REPORT INFORMATION
  Report Type: 
  Country: None (occurrence: None)
  Receive Date: 20120705
  Receipt Date: 20120625
  Transmission Date: 20120928
  Serious: Yes (Hospitalization)
  Sender: FDA-Public Use
  Company Number: DE-BAYER-2012-062646

PATIENT
  Age: 55 Year
  Weight: 84 kg

DRUGS (1)
  1. SORAFENIB (RAF KINASE INHIBITOR) [Suspect]
     Indication: HEPATIC NEOPLASM MALIGNANT
     Dosage: DAILY DOSE 400 MG
     Dates: start: 20110721, end: 20110912

REACTIONS (3)
  - DIARRHOEA [None]
  - HEPATIC FAILURE [None]
  - ASCITES [None]
